FAERS Safety Report 13594067 (Version 1)
Quarter: 2017Q2

REPORT INFORMATION
  Report Type: Spontaneous
  Country: US (occurrence: US)
  Receive Date: 20170530
  Receipt Date: 20170530
  Transmission Date: 20170830
  Serious: No
  Sender: FDA-Public Use
  Company Number: US-ALARA PHARMACEUTICAL CORPORATION-2021373

PATIENT
  Sex: Female

DRUGS (1)
  1. LEVO-T [Suspect]
     Active Substance: LEVOTHYROXINE SODIUM

REACTIONS (5)
  - Defaecation urgency [Unknown]
  - Product odour abnormal [Unknown]
  - Nausea [Unknown]
  - Abdominal pain [Unknown]
  - Product solubility abnormal [Unknown]
